FAERS Safety Report 4493245-6 (Version None)
Quarter: 2004Q4

REPORT INFORMATION
  Report Type: 
  Country: None (occurrence: None)
  Receive Date: 20041029
  Receipt Date: 20041021
  Transmission Date: 20050328
  Serious: Yes (Death, Life-Threatening, Hospitalization)
  Sender: FDA-Public Use
  Company Number: RB-1021-2004

PATIENT
  Age: 49 Year
  Sex: Male

DRUGS (4)
  1. SUBOXONE [Suspect]
     Indication: DRUG DEPENDENCE
     Dosage: 20 MG
     Route: 060
     Dates: start: 20040405, end: 20041013
  2. INTERFERON [Concomitant]
  3. RIBAVIRIN [Concomitant]
  4. ESCITALOPRAM [Concomitant]

REACTIONS (13)
  - ALCOHOL USE [None]
  - ANAEMIA [None]
  - BONE MARROW DEPRESSION [None]
  - CIRCULATORY COLLAPSE [None]
  - DRUG ABUSER [None]
  - DYSPNOEA [None]
  - FATIGUE [None]
  - HAEMODYNAMIC INSTABILITY [None]
  - LOCALISED INFECTION [None]
  - MUSCLE CRAMP [None]
  - NEUTROPHIL COUNT DECREASED [None]
  - OEDEMA PERIPHERAL [None]
  - PAIN IN EXTREMITY [None]
